FAERS Safety Report 9271508 (Version 1)
Quarter: 2013Q2

REPORT INFORMATION
  Report Type: Spontaneous
  Country: US (occurrence: US)
  Receive Date: 20130506
  Receipt Date: 20130506
  Transmission Date: 20140414
  Serious: No
  Sender: FDA-Public Use
  Company Number: US-PFIZER INC-2013113810

PATIENT
  Age: 82 Year
  Sex: Female

DRUGS (1)
  1. INLYTA [Suspect]
     Indication: RENAL CANCER
     Dosage: 7 MG TWICE DAILY
     Route: 048
     Dates: start: 201302

REACTIONS (1)
  - Diarrhoea [Unknown]
